FAERS Safety Report 7906186-6 (Version None)
Quarter: 2011Q4

REPORT INFORMATION
  Report Type: 
  Country: None (occurrence: None)
  Receive Date: 20111109
  Receipt Date: 20111109
  Transmission Date: 20120403
  Serious: Yes (Other)
  Sender: FDA-Public Use
  Company Number: None

PATIENT
  Age: 57 Year
  Sex: Female
  Weight: 102.0593 kg

DRUGS (1)
  1. SIMVASTATIN [Suspect]
     Indication: BLOOD CHOLESTEROL INCREASED
     Dosage: 40 MG 1 X DAY
     Dates: start: 20110901, end: 20111005

REACTIONS (4)
  - DISCOMFORT [None]
  - DYSPNOEA [None]
  - MUSCLE SPASMS [None]
  - MUSCLE STRAIN [None]
